FAERS Safety Report 20558583 (Version 3)
Quarter: 2022Q2

REPORT INFORMATION
  Report Type: Report from Study
  Country: DE (occurrence: DE)
  Receive Date: 20220307
  Receipt Date: 20220516
  Transmission Date: 20220721
  Serious: Yes (Hospitalization)
  Sender: FDA-Public Use
  Company Number: DE-NOVARTISPH-NVSC2022DE051223

PATIENT
  Sex: Male
  Weight: 115 kg

DRUGS (4)
  1. DABRAFENIB [Suspect]
     Active Substance: DABRAFENIB
     Indication: Malignant melanoma
     Dosage: 150 MG
     Route: 065
     Dates: start: 20211215, end: 20220211
  2. DABRAFENIB [Suspect]
     Active Substance: DABRAFENIB
     Dosage: 2 MG 1-0-0
     Route: 048
  3. TRAMETINIB [Suspect]
     Active Substance: TRAMETINIB
     Indication: Malignant melanoma
     Dosage: 2 MG
     Route: 065
     Dates: start: 20211215, end: 20220211
  4. TRAMETINIB [Suspect]
     Active Substance: TRAMETINIB
     Dosage: 75 MG 2-0-2
     Route: 048

REACTIONS (2)
  - Congestive cardiomyopathy [Recovered/Resolved]
  - Left ventricular dysfunction [Unknown]

NARRATIVE: CASE EVENT DATE: 20220211
